FAERS Safety Report 10008568 (Version 1)
Quarter: 2014Q1

REPORT INFORMATION
  Report Type: Spontaneous
  Country: HU (occurrence: HU)
  Receive Date: 20140313
  Receipt Date: 20140313
  Transmission Date: 20141002
  Serious: Yes (Death)
  Sender: FDA-Public Use
  Company Number: PHHY2014HU029146

PATIENT
  Age: 55 Year
  Sex: Male

DRUGS (1)
  1. TIMOLOL [Suspect]
     Indication: INTRAOCULAR PRESSURE INCREASED
     Route: 031

REACTIONS (2)
  - Death [Fatal]
  - Drug ineffective [Unknown]
